FAERS Safety Report 18727102 (Version 2)
Quarter: 2021Q1

REPORT INFORMATION
  Report Type: Spontaneous
  Country: US (occurrence: US)
  Receive Date: 20210112
  Receipt Date: 20210212
  Transmission Date: 20210419
  Serious: Yes (Hospitalization, Other)
  Sender: FDA-Public Use
  Company Number: US-PFIZER INC-2021013991

PATIENT
  Age: 62 Year
  Sex: Female
  Weight: 72.56 kg

DRUGS (2)
  1. IBRANCE [Suspect]
     Active Substance: PALBOCICLIB
     Indication: BREAST CANCER
     Dosage: 125 MG, CYCLIC, 1 DAILY FOR 21 DAYS
     Route: 048
     Dates: start: 20201106
  2. IBRANCE [Suspect]
     Active Substance: PALBOCICLIB
     Dosage: 125 MG, CYCLIC, 1 DAILY FOR 21 DAYS
     Route: 048
     Dates: start: 20201106

REACTIONS (3)
  - Bone disorder [Unknown]
  - Joint injury [Unknown]
  - Bone lesion [Unknown]

NARRATIVE: CASE EVENT DATE: 20210126
